FAERS Safety Report 8910803 (Version 6)
Quarter: 2013Q4

REPORT INFORMATION
  Report Type: Spontaneous
  Country: US (occurrence: US)
  Receive Date: 20121115
  Receipt Date: 20131105
  Transmission Date: 20140711
  Serious: Yes (Hospitalization, Other)
  Sender: FDA-Public Use
  Company Number: US-MERCK-1211USA005962

PATIENT
  Sex: Female

DRUGS (4)
  1. FOSAMAX [Suspect]
     Indication: OSTEOPOROSIS
     Dosage: 10 MG, UNK
     Route: 048
     Dates: start: 2001
  2. FOSAMAX [Suspect]
     Dosage: 70 MG, QW
     Route: 048
     Dates: end: 2008
  3. ALENDRONATE SODIUM [Suspect]
     Indication: OSTEOPOROSIS
     Dosage: 5 MG, UNK
     Route: 048
     Dates: end: 201201
  4. ALENDRONATE SODIUM [Suspect]
     Dosage: 70 MG, QW
     Route: 048
     Dates: start: 2008, end: 201201

REACTIONS (31)
  - Femur fracture [Recovering/Resolving]
  - Intramedullary rod insertion [Unknown]
  - Breast cancer [Unknown]
  - Low turnover osteopathy [Unknown]
  - Bone loss [Unknown]
  - Tooth extraction [Unknown]
  - Artificial crown procedure [Unknown]
  - Tooth abscess [Unknown]
  - Endodontic procedure [Unknown]
  - Heart rate increased [Unknown]
  - Limb asymmetry [Unknown]
  - Rib fracture [Unknown]
  - Vitamin D deficiency [Unknown]
  - Blood cholesterol increased [Unknown]
  - Pain [Unknown]
  - Spinal deformity [Unknown]
  - Adverse event [Unknown]
  - Adverse event [Unknown]
  - Adverse event [Unknown]
  - Adverse event [Unknown]
  - Staphylococcal infection [Unknown]
  - Road traffic accident [Unknown]
  - Clavicle fracture [Unknown]
  - Rib fracture [Unknown]
  - Muscle injury [Unknown]
  - Osteoarthritis [Unknown]
  - Scoliosis [Unknown]
  - Migraine [Unknown]
  - Anxiety [Unknown]
  - Bronchitis [Unknown]
  - Arthralgia [Unknown]
